FAERS Safety Report 5726732-0 (Version None)
Quarter: 2008Q2

REPORT INFORMATION
  Report Type: 
  Country: None (occurrence: None)
  Receive Date: 20080502
  Receipt Date: 20080425
  Transmission Date: 20081010
  Serious: Yes (Life-Threatening, Hospitalization)
  Sender: FDA-Public Use
  Company Number: FR-PFIZER INC-2008015730

PATIENT
  Age: 24 Year
  Sex: Male

DRUGS (5)
  1. TAHOR [Suspect]
     Route: 048
     Dates: start: 20071030, end: 20071130
  2. AMLOR [Suspect]
     Route: 048
     Dates: start: 20071030, end: 20071203
  3. WELLVONE [Suspect]
     Route: 048
     Dates: start: 20071030, end: 20071130
  4. TRIATEC [Suspect]
     Route: 048
     Dates: start: 20071030, end: 20071130
  5. ASPIRIN [Suspect]
     Route: 048
     Dates: start: 20071112, end: 20071204

REACTIONS (1)
  - TOXIC EPIDERMAL NECROLYSIS [None]
